FAERS Safety Report 4713771-1 (Version None)
Quarter: 2005Q3

REPORT INFORMATION
  Report Type: 
  Country: None (occurrence: None)
  Receive Date: 20050713
  Receipt Date: 20050706
  Transmission Date: 20060218
  Serious: Yes (Death)
  Sender: FDA-Public Use
  Company Number: FR-MERCK-0507USA00753

PATIENT
  Age: 69 Year
  Sex: Female

DRUGS (5)
  1. FOSINOPRIL SODIUM [Concomitant]
     Route: 065
  2. ZOLEDRONIC ACID [Suspect]
     Indication: METASTASES TO BONE
     Route: 041
  3. HYDRODIURIL [Suspect]
     Route: 048
  4. ALLOPURINOL [Concomitant]
     Route: 065
  5. FLUVASTATIN SODIUM [Concomitant]
     Route: 065

REACTIONS (1)
  - RENAL FAILURE ACUTE [None]
